FAERS Safety Report 4717083-1 (Version None)
Quarter: 2005Q3

REPORT INFORMATION
  Report Type: 
  Country: None (occurrence: None)
  Receive Date: 20050715
  Receipt Date: 20050331
  Transmission Date: 20060218
  Serious: Yes (Hospitalization)
  Sender: FDA-Public Use
  Company Number: 2005FR-00103

PATIENT
  Sex: Female

DRUGS (2)
  1. IBUPROFEN [Suspect]
     Indication: PYREXIA
     Dosage: 5 MG/KG
  2. ACETAMINOPHEN [Suspect]
     Dosage: 15 MG/KG

REACTIONS (3)
  - HYPOTHERMIA [None]
  - PNEUMONIA [None]
  - SEPSIS [None]
